FAERS Safety Report 23261993 (Version 1)
Quarter: 2023Q4

REPORT INFORMATION
  Report Type: Other
  Country: FR (occurrence: None)
  Receive Date: 20231205
  Receipt Date: 20231205
  Transmission Date: 20240109
  Serious: Yes (Other)
  Sender: FDA-Public Use
  Company Number: FR-ROCHE-3468689

PATIENT

DRUGS (1)
  1. RITUXIMAB [Suspect]
     Active Substance: RITUXIMAB
     Indication: Acquired haemophilia
     Route: 065

REACTIONS (4)
  - Off label use [Unknown]
  - Basal cell carcinoma [Unknown]
  - Cardiac failure [Unknown]
  - Agitation [Unknown]
